FAERS Safety Report 6661643-8 (Version None)
Quarter: 2010Q1

REPORT INFORMATION
  Report Type: 
  Country: None (occurrence: None)
  Receive Date: 20100331
  Receipt Date: 20090319
  Transmission Date: 20100710
  Serious: No
  Sender: FDA-Public Use
  Company Number: US-BRISTOL-MYERS SQUIBB COMPANY-14541734

PATIENT
  Age: 25 Year
  Sex: Female

DRUGS (1)
  1. ERBITUX [Suspect]
     Dosage: 5 DROPS OF CETUXIMAB UNDER 500 MG SOLUTION. TOPICAL EXPOSURE.

REACTIONS (2)
  - ACCIDENTAL EXPOSURE [None]
  - RASH [None]
